FAERS Safety Report 4520499-X (Version None)
Quarter: 2004Q4

REPORT INFORMATION
  Report Type: 
  Country: None (occurrence: None)
  Receive Date: 20041203
  Receipt Date: 20041118
  Transmission Date: 20050328
  Serious: Yes (Hospitalization)
  Sender: FDA-Public Use
  Company Number: 2004BI000039

PATIENT
  Age: 47 Year
  Sex: Female
  Weight: 53.978 kg

DRUGS (7)
  1. AVONEX [Suspect]
     Indication: MULTIPLE SCLEROSIS
     Dosage: 30 UG; QW; IM
     Route: 030
     Dates: start: 20041115
  2. XANAX [Concomitant]
  3. LASIX [Concomitant]
  4. PROVIGIL [Concomitant]
  5. AMBIEN [Concomitant]
  6. DETROL LA [Concomitant]
  7. ACCUPRIL [Concomitant]

REACTIONS (5)
  - ASTHENIA [None]
  - BLOOD PRESSURE DECREASED [None]
  - CHILLS [None]
  - INCOHERENT [None]
  - PYREXIA [None]
